FAERS Safety Report 10401599 (Version 1)
Quarter: 2014Q3

REPORT INFORMATION
  Report Type: Spontaneous
  Country: US (occurrence: US)
  Receive Date: 20140822
  Receipt Date: 20140822
  Transmission Date: 20150326
  Serious: Yes (Other)
  Sender: FDA-Public Use
  Company Number: PHEH2014US016625

PATIENT

DRUGS (1)
  1. ZORTRESS [Suspect]
     Active Substance: EVEROLIMUS
     Dosage: UNK UKN, UNK
     Route: 048

REACTIONS (1)
  - Kidney transplant rejection [Recovered/Resolved]
